FAERS Safety Report 10157248 (Version 3)
Quarter: 2020Q1

REPORT INFORMATION
  Report Type: Report from Study
  Country: US (occurrence: US)
  Receive Date: 20140507
  Receipt Date: 20200320
  Transmission Date: 20200409
  Serious: Yes (Hospitalization, Other)
  Sender: FDA-Public Use
  Company Number: US-SA-2014SA057179

PATIENT
  Age: 67 Year
  Sex: Female

DRUGS (2)
  1. CEREZYME [Suspect]
     Active Substance: IMIGLUCERASE
     Indication: GAUCHER^S DISEASE TYPE I
     Dosage: 4000 DF,QOW
     Route: 042
     Dates: start: 20140409
  2. CEREZYME [Suspect]
     Active Substance: IMIGLUCERASE
     Dosage: 4000 DF,QOW
     Route: 042
     Dates: start: 20140516

REACTIONS (4)
  - Bone pain [Not Recovered/Not Resolved]
  - Weight increased [Unknown]
  - Atrial fibrillation [Unknown]
  - Product dose omission [Unknown]

NARRATIVE: CASE EVENT DATE: 201404
